FAERS Safety Report 4845539-X (Version None)
Quarter: 2005Q4

REPORT INFORMATION
  Report Type: 
  Country: None (occurrence: None)
  Receive Date: 20051201
  Receipt Date: 20051116
  Transmission Date: 20060501
  Serious: Yes (Hospitalization)
  Sender: FDA-Public Use
  Company Number: 2005BI019541

PATIENT
  Age: 61 Year
  Sex: Female

DRUGS (3)
  1. AVONEX [Suspect]
     Indication: MULTIPLE SCLEROSIS
     Dosage: 30 UG QW IM
     Route: 030
     Dates: start: 20000103, end: 20020107
  2. AVONEX [Suspect]
     Indication: MULTIPLE SCLEROSIS
     Dosage: 30 UG QW IM
     Route: 030
     Dates: start: 20050509
  3. IMMUNE GLOBULIN INTRAVENOUS (HUMAN) [Concomitant]

REACTIONS (6)
  - ASTHENIA [None]
  - CONDITION AGGRAVATED [None]
  - DIALYSIS [None]
  - ILEOSTOMY [None]
  - MULTIPLE SCLEROSIS [None]
  - POST PROCEDURAL COMPLICATION [None]
